FAERS Safety Report 10489562 (Version 1)
Quarter: 2014Q3

REPORT INFORMATION
  Report Type: Spontaneous
  Country: CA (occurrence: None)
  Receive Date: 20140930
  Receipt Date: 20140930
  Transmission Date: 20150326
  Serious: Yes (Other)
  Sender: FDA-Public Use
  Company Number: CA-014367

PATIENT
  Age: 75 Year
  Sex: Male

DRUGS (2)
  1. FIRMAGON [Suspect]
     Active Substance: DEGARELIX ACETATE
     Indication: PROSTATE CANCER
     Route: 058
     Dates: start: 20121001
  2. ANTIANDROGENS [Concomitant]
     Active Substance: UNSPECIFIED INGREDIENT

REACTIONS (10)
  - Injection site pain [None]
  - Skin hypertrophy [None]
  - Skin discolouration [None]
  - Weight decreased [None]
  - Malaise [None]
  - Swelling [None]
  - Peripheral swelling [None]
  - Injection site mass [None]
  - Pain [None]
  - Abdominal pain [None]
